FAERS Safety Report 9714658 (Version 2)
Quarter: 2014Q1

REPORT INFORMATION
  Report Type: Spontaneous
  Country: IT (occurrence: DE)
  Receive Date: 20131126
  Receipt Date: 20140228
  Transmission Date: 20141002
  Serious: Yes (Other)
  Sender: FDA-Public Use
  Company Number: DE-FRI-1000051741

PATIENT
  Age: 49 Year
  Sex: Male

DRUGS (1)
  1. NEBIVOLOL [Suspect]
     Indication: SYSTOLIC HYPERTENSION
     Dosage: 2.5 MG
     Route: 048
     Dates: start: 201006, end: 20140218

REACTIONS (2)
  - Pancreatitis [Recovered/Resolved]
  - Lipase increased [Recovered/Resolved]
